FAERS Safety Report 18138719 (Version 1)
Quarter: 2020Q3

REPORT INFORMATION
  Report Type: Spontaneous
  Country: US (occurrence: US)
  Receive Date: 20200811
  Receipt Date: 20200811
  Transmission Date: 20201103
  Serious: Yes (Other)
  Sender: FDA-Public Use
  Company Number: None

PATIENT
  Age: 86 Year
  Sex: Female
  Weight: 72.57 kg

DRUGS (1)
  1. LEVOFLOXACIN 250MG TABLETS [Suspect]
     Active Substance: LEVOFLOXACIN
     Indication: URINARY TRACT INFECTION
     Dosage: ?          QUANTITY:2 PILLS AND THEN 1;OTHER FREQUENCY:2 PILLS AND THEN 1;?
     Route: 048
     Dates: start: 20200723, end: 20200723

REACTIONS (2)
  - Hallucination [None]
  - Insomnia [None]

NARRATIVE: CASE EVENT DATE: 20200723
